FAERS Safety Report 7044930-3 (Version None)
Quarter: 2010Q3

REPORT INFORMATION
  Report Type: 
  Country: None (occurrence: None)
  Receive Date: 20100929
  Receipt Date: 20100610
  Transmission Date: 20110219
  Serious: No
  Sender: FDA-Public Use
  Company Number: US-WYE-H15860510

PATIENT
  Age: 38 Year
  Sex: Female
  Weight: 81.72 kg

DRUGS (5)
  1. PRISTIQ [Suspect]
     Indication: DEPRESSION
     Dosage: (50 MG 1X PER 1 DAY) (50 MG 1X PER 1 DAY)
     Dates: start: 20100601, end: 20100601
  2. PRISTIQ [Suspect]
     Indication: DEPRESSION
     Dosage: (50 MG 1X PER 1 DAY) (50 MG 1X PER 1 DAY)
     Dates: start: 20100601
  3. NEURONTIN [Concomitant]
  4. VICODIN [Concomitant]
  5. PHENTERMINE [Concomitant]

REACTIONS (2)
  - DIARRHOEA [None]
  - NAUSEA [None]
